FAERS Safety Report 16302637 (Version 4)
Quarter: 2019Q3

REPORT INFORMATION
  Report Type: Report from Study
  Country: None (occurrence: RO)
  Receive Date: 20190513
  Receipt Date: 20190725
  Transmission Date: 20191004
  Serious: Yes (Hospitalization, Other)
  Sender: FDA-Public Use
  Company Number: RO-ABBVIE-19S-135-2777999-00

PATIENT
  Age: 73 Year
  Sex: Male

DRUGS (1)
  1. DUODOPA [Suspect]
     Active Substance: CARBIDOPA\LEVODOPA
     Indication: PARKINSON^S DISEASE
     Dosage: DM=14.00 DC=5.40 ED=2.50 NRED=0; DMN=0.00 DCN=0.00 EDN=0.00 NREDN=0
     Route: 050
     Dates: start: 20190308

REACTIONS (12)
  - Parkinson^s disease [Unknown]
  - Acute respiratory failure [Recovering/Resolving]
  - Vascular dementia [Unknown]
  - Nocturnal dyspnoea [Not Recovered/Not Resolved]
  - Weight decreased [Not Recovered/Not Resolved]
  - Pyrexia [Recovering/Resolving]
  - Hallucination [Not Recovered/Not Resolved]
  - Dysphagia [Not Recovered/Not Resolved]
  - Pleurisy [Unknown]
  - Delirium [Unknown]
  - General physical condition abnormal [Recovering/Resolving]
  - Dementia Alzheimer^s type [Unknown]

NARRATIVE: CASE EVENT DATE: 2019
